FAERS Safety Report 6851394-9 (Version None)
Quarter: 2010Q3

REPORT INFORMATION
  Report Type: 
  Country: None (occurrence: None)
  Receive Date: 20100717
  Receipt Date: 20080117
  Transmission Date: 20110219
  Serious: No
  Sender: FDA-Public Use
  Company Number: US-PFIZER INC-2008006412

PATIENT

DRUGS (1)
  1. CHANTIX [Suspect]

REACTIONS (4)
  - ACTIVITIES OF DAILY LIVING IMPAIRED [None]
  - FEELING ABNORMAL [None]
  - NAUSEA [None]
  - THERAPY CESSATION [None]
